FAERS Safety Report 13238068 (Version 3)
Quarter: 2017Q1

REPORT INFORMATION
  Report Type: Report from Study
  Country: None (occurrence: CA)
  Receive Date: 20170216
  Receipt Date: 20170302
  Transmission Date: 20170428
  Serious: Yes (Other)
  Sender: FDA-Public Use
  Company Number: CA-ABBVIE-16K-028-1736847-00

PATIENT
  Age: 43 Year
  Sex: Male

DRUGS (2)
  1. HUMIRA [Suspect]
     Active Substance: ADALIMUMAB
     Route: 058
     Dates: start: 2016
  2. HUMIRA [Suspect]
     Active Substance: ADALIMUMAB
     Indication: HIDRADENITIS
     Route: 058
     Dates: start: 20160617, end: 2016

REACTIONS (11)
  - Swelling [Not Recovered/Not Resolved]
  - Pain in extremity [Recovering/Resolving]
  - Scar [Unknown]
  - Inflammation [Not Recovered/Not Resolved]
  - Procedural complication [Recovered/Resolved]
  - Nodule [Recovered/Resolved]
  - Pain [Not Recovered/Not Resolved]
  - Drug effect decreased [Unknown]
  - Procedural pain [Recovered/Resolved]
  - Hidradenitis [Not Recovered/Not Resolved]
  - Inflammation [Recovering/Resolving]

NARRATIVE: CASE EVENT DATE: 2016
